FAERS Safety Report 10936632 (Version 4)
Quarter: 2015Q1

REPORT INFORMATION
  Report Type: Spontaneous
  Country: US (occurrence: None)
  Receive Date: 20150212
  Receipt Date: 20150212
  Transmission Date: 20150721
  Serious: No
  Sender: FDA-Public Use
  Company Number: TPA2011A00050

PATIENT
  Age: 73 Year
  Sex: Male
  Weight: 86.18 kg

DRUGS (4)
  1. ULORIC [Suspect]
     Active Substance: FEBUXOSTAT
     Indication: GOUT
     Route: 048
     Dates: start: 201009, end: 201010
  2. COLCRYS [Concomitant]
     Active Substance: COLCHICINE
  3. INDOMETHACIN. [Concomitant]
     Active Substance: INDOMETHACIN
  4. PREDNISONE. [Concomitant]
     Active Substance: PREDNISONE

REACTIONS (10)
  - Asthenia [None]
  - Arthralgia [None]
  - Heart rate increased [None]
  - Cough [None]
  - Dyspnoea [None]
  - Fatigue [None]
  - Gout [None]
  - Respiratory tract infection [None]
  - Hyperhidrosis [None]
  - Diarrhoea [None]

NARRATIVE: CASE EVENT DATE: 2010
